FAERS Safety Report 9504738 (Version 3)
Quarter: 2013Q4

REPORT INFORMATION
  Report Type: Spontaneous
  Country: US (occurrence: US)
  Receive Date: 20130906
  Receipt Date: 20131122
  Transmission Date: 20140711
  Serious: Yes (Death, Hospitalization)
  Sender: FDA-Public Use
  Company Number: US-PFIZER INC-2013255513

PATIENT
  Age: 70 Year
  Sex: Female

DRUGS (2)
  1. AROMASIN [Suspect]
     Indication: BREAST CANCER
     Dosage: 25 MG, DAILY
     Route: 048
     Dates: start: 20130222, end: 20130901
  2. AFINITOR [Suspect]
     Indication: BREAST CANCER
     Dosage: 10 MG, DAILY
     Route: 048
     Dates: start: 20130322, end: 20130901

REACTIONS (9)
  - Disease progression [Fatal]
  - Breast cancer metastatic [Fatal]
  - Vomiting [Fatal]
  - Peritonitis [Fatal]
  - Malnutrition [Fatal]
  - Pneumonia bacterial [Fatal]
  - Sepsis [Fatal]
  - Dehydration [Unknown]
  - Small intestinal obstruction [Unknown]
